FAERS Safety Report 23401499 (Version 2)
Quarter: 2025Q1

REPORT INFORMATION
  Report Type: Spontaneous
  Country: US (occurrence: US)
  Receive Date: 20240115
  Receipt Date: 20250317
  Transmission Date: 20250409
  Serious: No
  Sender: PFIZER
  Company Number: US-PFIZER INC-202400009661

PATIENT
  Age: 85 Year
  Sex: Female
  Weight: 47.63 kg

DRUGS (1)
  1. VYNDAMAX [Suspect]
     Active Substance: TAFAMIDIS
     Indication: Amyloidosis
     Dates: start: 202312

REACTIONS (6)
  - Peripheral swelling [Unknown]
  - Dyspnoea [Unknown]
  - Abdominal pain upper [Unknown]
  - Weight increased [Unknown]
  - Intra-abdominal fluid collection [Unknown]
  - Therapeutic product effect incomplete [Unknown]
